FAERS Safety Report 8286467 (Version 3)
Quarter: 2013Q4

REPORT INFORMATION
  Report Type: Spontaneous
  Country: US (occurrence: US)
  Receive Date: 20111213
  Receipt Date: 20131231
  Transmission Date: 20140711
  Serious: Yes (Other)
  Sender: FDA-Public Use
  Company Number: US-BAYER-2011-115995

PATIENT
  Age: 45 Year
  Sex: Female
  Weight: 48.98 kg

DRUGS (7)
  1. MIRENA [Suspect]
     Indication: CONTRACEPTION
     Dosage: 20 MCG/24HR, CONT
     Route: 015
     Dates: start: 20110923, end: 20111207
  2. MIRENA [Suspect]
     Indication: CONTRACEPTION
     Dosage: UNK
     Dates: start: 200608, end: 201112
  3. MIRENA [Suspect]
     Indication: CONTRACEPTION
     Dosage: UNK
     Dates: start: 201109, end: 201202
  4. LEXAPRO [Concomitant]
  5. XANAX [Concomitant]
  6. VITAMIN B COMPLEX [Concomitant]
  7. CALCIUM [Concomitant]

REACTIONS (16)
  - Uterine perforation [None]
  - Device difficult to use [None]
  - Genital haemorrhage [None]
  - Device dislocation [None]
  - Procedural pain [None]
  - Abdominal pain [None]
  - Pelvic pain [None]
  - Injury [None]
  - Emotional distress [None]
  - Medical device discomfort [None]
  - Depression [None]
  - Anxiety [None]
  - Depressed mood [None]
  - Emotional distress [None]
  - Fear [None]
  - Internal injury [None]
